FAERS Safety Report 13591712 (Version 2)
Quarter: 2017Q2

REPORT INFORMATION
  Report Type: Report from Study
  Country: AU (occurrence: AU)
  Receive Date: 20170530
  Receipt Date: 20170608
  Transmission Date: 20170830
  Serious: Yes (Other)
  Sender: FDA-Public Use
  Company Number: AU-REGENERON PHARMACEUTICALS, INC.-2017-16352

PATIENT

DRUGS (1)
  1. EYLEA [Suspect]
     Active Substance: AFLIBERCEPT
     Indication: RETINAL VEIN OCCLUSION
     Dosage: 6 WEEKLY/10WEEKLY (TOTAL 72 INJECTIONS)
     Route: 031
     Dates: start: 20130201

REACTIONS (2)
  - Visual impairment [Unknown]
  - Retinal haemorrhage [Unknown]
